FAERS Safety Report 5346539-6 (Version None)
Quarter: 2007Q2

REPORT INFORMATION
  Report Type: 
  Country: None (occurrence: None)
  Receive Date: 20070430
  Receipt Date: 20070108
  Transmission Date: 20071010
  Serious: Yes (Hospitalization)
  Sender: FDA-Public Use
  Company Number: 012677

PATIENT
  Age: 50 Year
  Sex: Male

DRUGS (6)
  1. PRIALT [Suspect]
     Indication: PAIN
     Dosage: SEE IMAGE
     Route: 037
     Dates: start: 20061101, end: 20060101
  2. PRIALT [Suspect]
     Indication: PAIN
     Dosage: SEE IMAGE
     Route: 037
     Dates: start: 20061106, end: 20061101
  3. PRIALT [Suspect]
     Indication: PAIN
     Dosage: SEE IMAGE
     Route: 037
     Dates: start: 20061208, end: 20061220
  4. PRIALT [Suspect]
     Indication: PAIN
     Dosage: SEE IMAGE
     Route: 037
     Dates: start: 20061222
  5. BUPIVACAINE [Concomitant]
  6. MORPHINE [Concomitant]

REACTIONS (11)
  - ANOREXIA [None]
  - ASTHENIA [None]
  - BURNING SENSATION [None]
  - CHILLS [None]
  - DIARRHOEA [None]
  - FAECAL INCONTINENCE [None]
  - HALLUCINATION, VISUAL [None]
  - IMPAIRED DRIVING ABILITY [None]
  - PAIN [None]
  - PRURITUS [None]
  - VOMITING [None]
